FAERS Safety Report 13916979 (Version 1)
Quarter: 2017Q3

REPORT INFORMATION
  Report Type: Spontaneous
  Country: ZA (occurrence: ZA)
  Receive Date: 20170829
  Receipt Date: 20170829
  Transmission Date: 20171127
  Serious: Yes (Death)
  Sender: FDA-Public Use
  Company Number: ZA-MYLANLABS-2017M1052721

PATIENT

DRUGS (8)
  1. CARLOC [Suspect]
     Active Substance: CARVEDILOL
     Indication: HYPERTENSION
     Dosage: 6.25 MG, UNK
     Route: 048
     Dates: end: 20170727
  2. ELTROXIN [Suspect]
     Active Substance: LEVOTHYROXINE
     Indication: THYROID THERAPY
     Dosage: 100 MCG, UNK
     Route: 048
     Dates: end: 20170727
  3. MYLAN FUROSEMIDE 40 [Suspect]
     Active Substance: FUROSEMIDE
     Indication: DIURETIC THERAPY
     Dosage: 40 MG, UNK
     Route: 048
     Dates: end: 20170727
  4. ALDACTONE [Suspect]
     Active Substance: SPIRONOLACTONE
     Indication: HYPERTENSION
     Dosage: 25 MG, UNK
     Route: 048
     Dates: end: 20170727
  5. CIPLA-SIMVASTATIN [Suspect]
     Active Substance: SIMVASTATIN
     Indication: BLOOD CHOLESTEROL
     Dosage: 20 MG, UNK
     Route: 048
     Dates: end: 20170727
  6. GALVUS MET [Suspect]
     Active Substance: METFORMIN HYDROCHLORIDE\VILDAGLIPTIN
     Indication: DIABETES MELLITUS
     Dosage: 50/1000 MG
     Route: 048
     Dates: end: 20170727
  7. AZARGA [Suspect]
     Active Substance: BRINZOLAMIDE\TIMOLOL MALEATE
     Indication: GLAUCOMA
     Dosage: 10 MG, UNK
     Route: 048
     Dates: end: 20170727
  8. BIGSENS [Suspect]
     Active Substance: METFORMIN HYDROCHLORIDE
     Indication: DIABETES MELLITUS
     Dosage: 1000 MG, UNK
     Route: 048
     Dates: end: 20170727

REACTIONS (1)
  - Organ failure [Fatal]
